FAERS Safety Report 4917957-2 (Version None)
Quarter: 2006Q1

REPORT INFORMATION
  Report Type: 
  Country: None (occurrence: None)
  Receive Date: 20060221
  Receipt Date: 20051004
  Transmission Date: 20060701
  Serious: Yes (Hospitalization)
  Sender: FDA-Public Use
  Company Number: US-MERCK-0510USA03865

PATIENT
  Age: 76 Year
  Sex: Female
  Weight: 82 kg

DRUGS (13)
  1. VIOXX [Suspect]
     Indication: PAIN
     Route: 048
     Dates: start: 20000210, end: 20040212
  2. VIOXX [Suspect]
     Indication: RHEUMATOID ARTHRITIS
     Route: 048
     Dates: start: 20000210, end: 20040212
  3. ALTACE [Concomitant]
     Indication: HYPERTENSION
     Route: 065
     Dates: start: 20020201, end: 20021101
  4. ALTACE [Concomitant]
     Indication: CARDIAC DISORDER
     Route: 065
     Dates: start: 20020201, end: 20021101
  5. VERAPAMIL [Concomitant]
     Indication: CARDIAC DISORDER
     Route: 065
     Dates: start: 20000201, end: 20020901
  6. HYDROCHLOROTHIAZIDE [Concomitant]
     Indication: HYPERTENSION
     Route: 065
     Dates: start: 20000201, end: 20040101
  7. HYDROCHLOROTHIAZIDE [Concomitant]
     Indication: OEDEMA
     Route: 065
     Dates: start: 20000201, end: 20040101
  8. NITROQUICK [Concomitant]
     Indication: CARDIAC DISORDER
     Route: 065
     Dates: start: 20010501, end: 20030701
  9. CATAPRES [Concomitant]
     Indication: HYPERTENSION
     Route: 065
     Dates: start: 20011001
  10. HYOSCYAMINE [Concomitant]
     Indication: GASTRIC DISORDER
     Route: 065
     Dates: start: 20010901
  11. EVISTA [Concomitant]
     Indication: OSTEOPOROSIS
     Route: 065
  12. COLCHICINE [Concomitant]
     Indication: PAIN
     Route: 065
     Dates: start: 20000901, end: 20040201
  13. KLOR-CON [Concomitant]
     Indication: CARDIAC DISORDER
     Route: 065
     Dates: start: 20010801, end: 20041201

REACTIONS (7)
  - ADVERSE EVENT [None]
  - ANOREXIA [None]
  - CEREBROVASCULAR ACCIDENT [None]
  - FALL [None]
  - HYPERSENSITIVITY [None]
  - INJURY [None]
  - INSOMNIA [None]
